FAERS Safety Report 16388129 (Version 2)
Quarter: 2019Q2

REPORT INFORMATION
  Report Type: Spontaneous
  Country: US (occurrence: US)
  Receive Date: 20190604
  Receipt Date: 20190624
  Transmission Date: 20190711
  Serious: Yes (Other)
  Sender: FDA-Public Use
  Company Number: US-ELI_LILLY_AND_COMPANY-US201905012811

PATIENT
  Sex: Female
  Weight: 123.81 kg

DRUGS (4)
  1. ORENITRAM [Suspect]
     Active Substance: TREPROSTINIL
     Indication: PULMONARY ARTERIAL HYPERTENSION
     Dosage: 7.5 MG, EVERY 8 HRS
     Route: 048
     Dates: start: 20190522
  2. ORENITRAM [Suspect]
     Active Substance: TREPROSTINIL
     Dosage: 7.5 MG, EVERY 8 HRS
     Route: 048
     Dates: start: 20190522
  3. TADALAFIL 20MG [Suspect]
     Active Substance: TADALAFIL
     Indication: PULMONARY ARTERIAL HYPERTENSION
     Dosage: 40 MG, DAILY
     Route: 048
     Dates: start: 20190523, end: 20190525
  4. REMODULIN [Suspect]
     Active Substance: TREPROSTINIL
     Indication: PULMONARY ARTERIAL HYPERTENSION
     Dosage: UNK UNK, TID
     Route: 058
     Dates: start: 20180710

REACTIONS (17)
  - Visual impairment [Unknown]
  - Dehydration [Unknown]
  - Pain in jaw [Unknown]
  - Nausea [Unknown]
  - Dyspnoea [Unknown]
  - Feeling hot [Unknown]
  - Oxygen saturation decreased [Unknown]
  - Diarrhoea [Unknown]
  - Heart rate increased [Unknown]
  - Urticaria [Unknown]
  - Renal failure [Unknown]
  - Contusion [Unknown]
  - Blood pressure decreased [Unknown]
  - Headache [Unknown]
  - Pain [Unknown]
  - Palpitations [Unknown]
  - Flushing [Unknown]
